FAERS Safety Report 19855283 (Version 1)
Quarter: 2021Q3

REPORT INFORMATION
  Report Type: Spontaneous
  Country: US (occurrence: US)
  Receive Date: 20210919
  Receipt Date: 20210919
  Transmission Date: 20211014
  Serious: Yes (Hospitalization, Disabling)
  Sender: FDA-Public Use
  Company Number: None

PATIENT
  Age: 35 Year
  Sex: Female
  Weight: 47.25 kg

DRUGS (3)
  1. SUPPLEMENTS [Concomitant]
     Active Substance: UNSPECIFIED INGREDIENT
  2. VITAMINS [Concomitant]
     Active Substance: VITAMINS
  3. LEVOFLOXACIN. [Suspect]
     Active Substance: LEVOFLOXACIN
     Indication: ANTIBIOTIC PROPHYLAXIS
     Dosage: QUANTITY:1 TABLET(S);?
     Route: 048
     Dates: start: 20210223, end: 20210306

REACTIONS (17)
  - Joint noise [None]
  - Toxicity to various agents [None]
  - Feeling abnormal [None]
  - Gait disturbance [None]
  - Paraesthesia [None]
  - Wheelchair user [None]
  - Neuropathy peripheral [None]
  - Arthralgia [None]
  - Bone pain [None]
  - Loss of personal independence in daily activities [None]
  - Headache [None]
  - Tendon pain [None]
  - Electric shock sensation [None]
  - Foot fracture [None]
  - Bedridden [None]
  - Suicidal ideation [None]
  - Abdominal discomfort [None]

NARRATIVE: CASE EVENT DATE: 20210310
